FAERS Safety Report 15087886 (Version 1)
Quarter: 2018Q2

REPORT INFORMATION
  Report Type: Spontaneous
  Country: FR (occurrence: FR)
  Receive Date: 20180629
  Receipt Date: 20180629
  Transmission Date: 20180711
  Serious: Yes (Other)
  Sender: FDA-Public Use
  Company Number: FR-TEVA-2018-FR-916196

PATIENT
  Age: 45 Year
  Sex: Male
  Weight: 87 kg

DRUGS (3)
  1. URSOLVAN 200 MG, G?LULE [Concomitant]
     Indication: STEM CELL TRANSPLANT
     Route: 048
     Dates: start: 2018
  2. BACTRIM [Suspect]
     Active Substance: SULFAMETHOXAZOLE\TRIMETHOPRIM
     Indication: STEM CELL TRANSPLANT
     Route: 048
     Dates: start: 201710
  3. AMOXICILLINE [Suspect]
     Active Substance: AMOXICILLIN
     Indication: STEM CELL TRANSPLANT
     Route: 048
     Dates: start: 201710

REACTIONS (2)
  - Tremor [Recovering/Resolving]
  - Sleep disorder [Recovering/Resolving]

NARRATIVE: CASE EVENT DATE: 201711
